FAERS Safety Report 6213138-3 (Version None)
Quarter: 2009Q2

REPORT INFORMATION
  Report Type: 
  Country: None (occurrence: None)
  Receive Date: 20090528
  Receipt Date: 20090414
  Transmission Date: 20091009
  Serious: Yes (Other)
  Sender: FDA-Public Use
  Company Number: MC200900140

PATIENT
  Sex: Male

DRUGS (1)
  1. CLEVIPREX [Suspect]
     Indication: HYPERTENSION
     Dosage: INTRAVENOUS
     Route: 042
     Dates: start: 20090410, end: 20090410

REACTIONS (1)
  - TACHYCARDIA [None]
